FAERS Safety Report 6582627-4 (Version None)
Quarter: 2010Q1

REPORT INFORMATION
  Report Type: 
  Country: None (occurrence: None)
  Receive Date: 20100216
  Receipt Date: 20100212
  Transmission Date: 20100710
  Serious: Yes (Hospitalization)
  Sender: FDA-Public Use
  Company Number: US-ABBOTT-10P-163-0617841-00

PATIENT
  Sex: Female
  Weight: 64.922 kg

DRUGS (1)
  1. HUMIRA [Suspect]
     Indication: COLITIS ULCERATIVE
     Dates: start: 20091230

REACTIONS (3)
  - ASTHENIA [None]
  - COLITIS ULCERATIVE [None]
  - PNEUMONIA [None]
